FAERS Safety Report 24841802 (Version 1)
Quarter: 2025Q1

REPORT INFORMATION
  Report Type: Spontaneous
  Country: CA (occurrence: CA)
  Receive Date: 20250114
  Receipt Date: 20250114
  Transmission Date: 20250409
  Serious: Yes (Hospitalization, Other)
  Sender: MERCK
  Company Number: CA-009507513-2501CAN003051

PATIENT
  Age: 74 Year
  Sex: Female
  Weight: 48 kg

DRUGS (1)
  1. KEYTRUDA [Suspect]
     Active Substance: PEMBROLIZUMAB
     Indication: Lung adenocarcinoma
     Dosage: 100 MILLIGRAM, Q3W
     Route: 042

REACTIONS (1)
  - Pancytopenia [Recovered/Resolved]
